FAERS Safety Report 6902064-X (Version None)
Quarter: 2010Q3

REPORT INFORMATION
  Report Type: 
  Country: None (occurrence: None)
  Receive Date: 20100802
  Receipt Date: 20100802
  Transmission Date: 20110219
  Serious: Yes (Hospitalization)
  Sender: FDA-Public Use
  Company Number: None

PATIENT
  Sex: Male
  Weight: 95.7 kg

DRUGS (1)
  1. ALIMTA [Suspect]
     Dosage: 1100 MG
     Dates: end: 20100719

REACTIONS (5)
  - NAUSEA [None]
  - OROPHARYNGEAL CANDIDIASIS [None]
  - PNEUMONIA [None]
  - TACHYCARDIA [None]
  - VOMITING [None]
